FAERS Safety Report 8103072-6 (Version None)
Quarter: 2012Q1

REPORT INFORMATION
  Report Type: 
  Country: None (occurrence: None)
  Receive Date: 20120201
  Receipt Date: 20120201
  Transmission Date: 20120608
  Serious: No
  Sender: FDA-Public Use
  Company Number: None

PATIENT
  Age: 53 Year
  Sex: Female
  Weight: 54.431 kg

DRUGS (2)
  1. VENLAFAXINE HCL [Suspect]
     Indication: PANIC DISORDER
     Dosage: 150 MG
     Route: 048
     Dates: start: 20120122, end: 20120131
  2. VENLAFAXINE HCL [Suspect]
     Indication: GENERALISED ANXIETY DISORDER
     Dosage: 150 MG
     Route: 048
     Dates: start: 20120122, end: 20120131

REACTIONS (8)
  - PRODUCT SUBSTITUTION ISSUE [None]
  - CONDITION AGGRAVATED [None]
  - WITHDRAWAL SYNDROME [None]
  - FATIGUE [None]
  - EMOTIONAL DISORDER [None]
  - PARAESTHESIA [None]
  - PANIC DISORDER [None]
  - NEGATIVISM [None]
